FAERS Safety Report 5047708-5 (Version None)
Quarter: 2006Q2

REPORT INFORMATION
  Report Type: 
  Country: None (occurrence: None)
  Receive Date: 20060601
  Receipt Date: 20060206
  Transmission Date: 20061013
  Serious: No
  Sender: FDA-Public Use
  Company Number: US200602001276

PATIENT
  Age: 83 Year
  Sex: Female

DRUGS (2)
  1. CYMBALTA [Suspect]
     Indication: NEUROPATHY
     Dosage: 30 MG, DAILY (1/D)
     Dates: start: 20050101, end: 20050101
  2. CYMBALTA [Suspect]
     Indication: NEUROPATHY
     Dosage: 30 MG, DAILY (1/D)
     Dates: start: 20060203

REACTIONS (5)
  - ABDOMINAL PAIN UPPER [None]
  - DIARRHOEA [None]
  - FATIGUE [None]
  - INTESTINAL FUNCTIONAL DISORDER [None]
  - NAUSEA [None]
